FAERS Safety Report 14099067 (Version 1)
Quarter: 2017Q4

REPORT INFORMATION
  Report Type: Report from Study
  Country: BR (occurrence: BR)
  Receive Date: 20171017
  Receipt Date: 20171017
  Transmission Date: 20180321
  Serious: Yes (Other)
  Sender: FDA-Public Use
  Company Number: BR-UCBSA-2016021909

PATIENT
  Age: 71 Year
  Sex: Female
  Weight: 58 kg

DRUGS (7)
  1. CERTOLIZUMAB PEGOL [Suspect]
     Active Substance: CERTOLIZUMAB PEGOL
     Dosage: 400 MG, MONTHLY (QM)
  2. FOLIC ACID. [Concomitant]
     Active Substance: FOLIC ACID
     Indication: RHEUMATOID ARTHRITIS
     Dosage: 5 MG, 3X/WEEK
     Route: 048
     Dates: start: 2006
  3. IVERMECTIN. [Concomitant]
     Active Substance: IVERMECTIN
     Indication: ACARODERMATITIS
     Dosage: 12 MG, WEEKLY (QW)
     Route: 048
     Dates: start: 20160603
  4. PERMETHRIN. [Concomitant]
     Active Substance: PERMETHRIN
     Indication: ACARODERMATITIS
     Dosage: UNKNOWN DOSE
     Route: 061
     Dates: start: 20160603
  5. ARAVA [Concomitant]
     Active Substance: LEFLUNOMIDE
     Indication: RHEUMATOID ARTHRITIS
     Dosage: 20 MG, 3X/WEEK
     Route: 048
     Dates: start: 2014
  6. ANDION [Concomitant]
     Indication: ACARODERMATITIS
     Dosage: UNKNOWN DOSE (CREAM GEL)
     Route: 061
     Dates: start: 20160603
  7. CERTOLIZUMAB PEGOL [Suspect]
     Active Substance: CERTOLIZUMAB PEGOL
     Indication: RHEUMATOID ARTHRITIS
     Dosage: 400 MG, EV 15 DAYS
     Dates: start: 20160502

REACTIONS (5)
  - Malignant neoplasm of eye [Unknown]
  - Fuchs^ syndrome [Not Recovered/Not Resolved]
  - Eye infection [Not Recovered/Not Resolved]
  - Uveitis [Not Recovered/Not Resolved]
  - Acarodermatitis [Recovering/Resolving]

NARRATIVE: CASE EVENT DATE: 201605
